FAERS Safety Report 14655228 (Version 1)
Quarter: 2018Q1

REPORT INFORMATION
  Report Type: Spontaneous
  Country: JP (occurrence: JP)
  Receive Date: 20180319
  Receipt Date: 20180319
  Transmission Date: 20180509
  Serious: Yes (Other)
  Sender: FDA-Public Use
  Company Number: PHJP2018JP005861

PATIENT
  Age: 56 Year
  Sex: Female
  Weight: 33.5 kg

DRUGS (1)
  1. PAZOPANIB [Suspect]
     Active Substance: PAZOPANIB
     Indication: RENAL CELL CARCINOMA
     Dosage: 600 MG, UNK
     Route: 048
     Dates: start: 20171107

REACTIONS (3)
  - Ascites [Unknown]
  - Abdominal distension [Unknown]
  - Dysgeusia [Unknown]
